FAERS Safety Report 5988637-X (Version None)
Quarter: 2008Q4

REPORT INFORMATION
  Report Type: 
  Country: None (occurrence: None)
  Receive Date: 20081210
  Receipt Date: 20081205
  Transmission Date: 20090506
  Serious: No
  Sender: FDA-Public Use
  Company Number: DE-ASTRAZENECA-2008PK02670

PATIENT
  Age: 18 Year
  Sex: Female

DRUGS (2)
  1. SEROQUEL XR [Suspect]
     Indication: SCHIZOPHRENIA, DISORGANISED TYPE
     Route: 048
     Dates: start: 20080923
  2. SEROQUEL XR [Suspect]
     Route: 048
     Dates: end: 20081203

REACTIONS (1)
  - LEUKOPENIA [None]
